FAERS Safety Report 23532147 (Version 3)
Quarter: 2024Q3

REPORT INFORMATION
  Report Type: Spontaneous
  Country: US (occurrence: US)
  Receive Date: 20240216
  Receipt Date: 20240916
  Transmission Date: 20241017
  Serious: No
  Sender: SANOFI AVENTIS
  Company Number: US-SA-SAC20240208001148

PATIENT
  Age: 9 Year
  Sex: Female

DRUGS (2)
  1. DUPIXENT [Suspect]
     Active Substance: DUPILUMAB
     Indication: Eczema
     Dosage: 600 MG, 1X
     Route: 058
     Dates: start: 202401, end: 202401
  2. DUPIXENT [Suspect]
     Active Substance: DUPILUMAB
     Indication: Dermatitis
     Dosage: 300 MG, Q4W
     Route: 058
     Dates: start: 202402

REACTIONS (10)
  - Cough [Not Recovered/Not Resolved]
  - Fear of injection [Unknown]
  - Injection site haemorrhage [Recovered/Resolved]
  - Anxiety [Unknown]
  - Skin exfoliation [Unknown]
  - Rash [Unknown]
  - Injection site swelling [Recovered/Resolved]
  - Eczema [Recovered/Resolved]
  - Therapeutic response shortened [Unknown]
  - Product use in unapproved indication [Unknown]

NARRATIVE: CASE EVENT DATE: 20240101
